FAERS Safety Report 4299936-4 (Version None)
Quarter: 2004Q1

REPORT INFORMATION
  Report Type: 
  Country: None (occurrence: None)
  Receive Date: 20040220
  Receipt Date: 20031216
  Transmission Date: 20041129
  Serious: Yes (Hospitalization)
  Sender: FDA-Public Use
  Company Number: PHHO2003US16455

PATIENT
  Age: 59 Year
  Sex: Male
  Weight: 103 kg

DRUGS (7)
  1. VALSARTAN +/-HCTZ VS AMLODIPINE +/-HCTZ [Suspect]
     Indication: ESSENTIAL HYPERTENSION
     Dosage: LEVEL 1
     Route: 048
     Dates: start: 19991112
  2. VALSARTAN +/-HCTZ VS AMLODIPINE +/-HCTZ [Suspect]
     Dosage: LEVEL 5
     Route: 048
  3. ESIDRIX [Suspect]
     Indication: ESSENTIAL HYPERTENSION
     Dosage: 25 MG, LEVEL 5
     Route: 048
  4. ISOSORBIDE DINITRATE [Concomitant]
  5. METOPROLOL SUCCINATE [Concomitant]
  6. SIMVASTATIN [Concomitant]
  7. CLONIDINE [Concomitant]
     Indication: ESSENTIAL HYPERTENSION
     Dosage: LEVEL 5, FREE ADD-ON

REACTIONS (7)
  - ANGINA UNSTABLE [None]
  - BLOOD CREATININE INCREASED [None]
  - BLOOD UREA INCREASED [None]
  - CONCOMITANT DISEASE PROGRESSION [None]
  - CORONARY ARTERY DISEASE [None]
  - HYPERTENSION [None]
  - HYPONATRAEMIA [None]
